FAERS Safety Report 8057881-2 (Version None)
Quarter: 2012Q1

REPORT INFORMATION
  Report Type: 
  Country: None (occurrence: None)
  Receive Date: 20120120
  Receipt Date: 20090408
  Transmission Date: 20120608
  Serious: No
  Sender: FDA-Public Use
  Company Number: 2009BI010934

PATIENT
  Sex: Female

DRUGS (1)
  1. TYSABRI [Suspect]
     Indication: MULTIPLE SCLEROSIS
     Route: 042
     Dates: start: 20080827

REACTIONS (11)
  - CYSTITIS [None]
  - FEELING HOT [None]
  - RASH PRURITIC [None]
  - MEMORY IMPAIRMENT [None]
  - INSOMNIA [None]
  - RASH PAPULAR [None]
  - URINARY TRACT INFECTION [None]
  - CHILLS [None]
  - MENOPAUSAL SYMPTOMS [None]
  - PRURITUS [None]
  - PRURITUS GENERALISED [None]
